FAERS Safety Report 7945700-1 (Version None)
Quarter: 2011Q4

REPORT INFORMATION
  Report Type: 
  Country: None (occurrence: None)
  Receive Date: 20111129
  Receipt Date: 20111124
  Transmission Date: 20120403
  Serious: Yes (Other)
  Sender: FDA-Public Use
  Company Number: RU-PFIZER INC-2011286494

PATIENT
  Sex: Female

DRUGS (3)
  1. DOSTINEX [Suspect]
     Indication: HYPERPROLACTINAEMIA
     Dosage: 0.5 DF, 2X/WEEK
  2. DOSTINEX [Suspect]
     Dosage: 0.25 DF, 2X/WEEK
  3. DOSTINEX [Suspect]
     Dosage: 0.25 DF, WEEKLY

REACTIONS (2)
  - BLOOD PROLACTIN INCREASED [None]
  - ABORTION SPONTANEOUS [None]
